FAERS Safety Report 7473299-5 (Version None)
Quarter: 2011Q1

REPORT INFORMATION
  Report Type: 
  Country: None (occurrence: None)
  Receive Date: 20110302
  Receipt Date: 20100913
  Transmission Date: 20110831
  Serious: Yes (Death, Hospitalization, Other)
  Sender: FDA-Public Use
  Company Number: 163-21880-10070066

PATIENT
  Age: 73 Year
  Sex: Male

DRUGS (17)
  1. PROCHLORPERAZINE MALEATE [Concomitant]
  2. LOPERAMIDE [Concomitant]
  3. MIRTAZAPINE [Concomitant]
  4. IRBESARTAN (IRBESARTAN) [Concomitant]
  5. OMEPRAZOLE [Concomitant]
  6. PREDNISONE [Concomitant]
  7. REVLIMID [Suspect]
     Indication: MULTIPLE MYELOMA
     Dosage: 5 MG, DAILY X 21 DAYS, PO; 25 MG, X 21 DAYS THEN 7 DAYS OFF - REPEAT, PO
     Route: 048
     Dates: start: 20100621, end: 20100701
  8. REVLIMID [Suspect]
     Indication: MULTIPLE MYELOMA
     Dosage: 5 MG, DAILY X 21 DAYS, PO; 25 MG, X 21 DAYS THEN 7 DAYS OFF - REPEAT, PO
     Route: 048
     Dates: start: 20100708, end: 20100101
  9. FLINTSTONE VITAMIN W IRON (VITAMINS, OTHER COMBINATIONS) [Concomitant]
  10. DARVOCET N (PROPACET) [Concomitant]
  11. PROMETHAZINE HCL (PROMETHAZINE HTYDROCHLORIDE) [Concomitant]
  12. WARFARIN SODIUM [Suspect]
     Indication: PRODUCT USED FOR UNKNOWN INDICATION
     Dosage: 5MG, 10MG, QD, SUNDAYS
     Dates: start: 20060531
  13. AMLODIPINE BESYLATE [Concomitant]
  14. FISH OIL (FISH OIL) [Concomitant]
  15. OXYCODONE W APAP (OXYCOCET) [Concomitant]
  16. DEXAMETHASONE [Concomitant]
  17. SULFAMETHOXAZOLE-TMP (BACTRIM) [Concomitant]

REACTIONS (8)
  - MULTIPLE MYELOMA [None]
  - GASTROENTERITIS RADIATION [None]
  - PYREXIA [None]
  - FUNGAL SEPSIS [None]
  - PNEUMONIA [None]
  - HAEMATURIA [None]
  - ANAEMIA [None]
  - RESPIRATORY FAILURE [None]
